FAERS Safety Report 4964792-5 (Version None)
Quarter: 2006Q2

REPORT INFORMATION
  Report Type: 
  Country: None (occurrence: None)
  Receive Date: 20060406
  Receipt Date: 20060327
  Transmission Date: 20061013
  Serious: Yes (Other)
  Sender: FDA-Public Use
  Company Number: PL-ROCHE-442303

PATIENT
  Age: 69 Year
  Sex: Male

DRUGS (3)
  1. XELODA [Suspect]
     Indication: COLON CANCER
     Dosage: 1250 MG/M2
     Route: 048
     Dates: start: 20060301
  2. RAMIPRIL [Concomitant]
     Route: 048
  3. BISOCARD [Concomitant]
     Route: 048

REACTIONS (1)
  - CORONARY ARTERY DISEASE [None]
